FAERS Safety Report 5490579-3 (Version None)
Quarter: 2007Q4

REPORT INFORMATION
  Report Type: 
  Country: None (occurrence: None)
  Receive Date: 20071019
  Receipt Date: 20071008
  Transmission Date: 20080405
  Serious: Yes (Other)
  Sender: FDA-Public Use
  Company Number: DE-JNJFOC-20070803100

PATIENT
  Sex: Male
  Weight: 125 kg

DRUGS (5)
  1. ITRACOL 7 [Suspect]
     Indication: TINEA PEDIS
     Route: 048
  2. NOVORAPID [Concomitant]
     Route: 065
  3. MOXONIDIN [Concomitant]
     Route: 048
  4. HYDROCHLOROTHIAZIDE [Concomitant]
     Route: 048
  5. AMLOBETA [Concomitant]
     Route: 048

REACTIONS (3)
  - BEDRIDDEN [None]
  - BURNING SENSATION [None]
  - PAIN [None]
